FAERS Safety Report 15940974 (Version 1)
Quarter: 2019Q1

REPORT INFORMATION
  Report Type: Spontaneous
  Country: US (occurrence: US)
  Receive Date: 20190208
  Receipt Date: 20190208
  Transmission Date: 20190417
  Serious: No
  Sender: FDA-Public Use
  Company Number: US-SHIRE-US201904307

PATIENT
  Sex: Female

DRUGS (1)
  1. XIIDRA [Suspect]
     Active Substance: LIFITEGRAST
     Indication: DRY EYE
     Dosage: UNK
     Route: 047

REACTIONS (6)
  - Secretion discharge [Unknown]
  - Instillation site reaction [Recovered/Resolved]
  - Vision blurred [Recovered/Resolved]
  - Incorrect dose administered [Unknown]
  - Nasopharyngitis [Recovered/Resolved]
  - Product label confusion [Unknown]
